FAERS Safety Report 25274613 (Version 1)
Quarter: 2025Q2

REPORT INFORMATION
  Report Type: Report from Study
  Country: EG (occurrence: EG)
  Receive Date: 20250506
  Receipt Date: 20250506
  Transmission Date: 20250717
  Serious: No
  Sender: SANDOZ
  Company Number: EG-SANDOZ-SDZ2023EG054161

PATIENT
  Age: 9 Year
  Sex: Male

DRUGS (4)
  1. OMNITROPE [Suspect]
     Active Substance: SOMATROPIN
     Indication: Short stature
     Route: 058
     Dates: start: 202202, end: 202305
  2. OMNITROPE [Suspect]
     Active Substance: SOMATROPIN
     Route: 058
     Dates: start: 202311
  3. OMNITROPE [Suspect]
     Active Substance: SOMATROPIN
     Route: 058
     Dates: start: 20220202, end: 20241001
  4. SOMATROPIN [Suspect]
     Active Substance: SOMATROPIN
     Indication: Product used for unknown indication
     Route: 058
     Dates: start: 202305, end: 202311

REACTIONS (7)
  - Medication error [Unknown]
  - Wrong technique in product usage process [Unknown]
  - Device breakage [Unknown]
  - Expired device used [Unknown]
  - Product substitution issue [Unknown]
  - Product availability issue [Unknown]
  - Off label use [Unknown]

NARRATIVE: CASE EVENT DATE: 20231101
